FAERS Safety Report 6477997-1 (Version None)
Quarter: 2009Q4

REPORT INFORMATION
  Report Type: 
  Country: None (occurrence: None)
  Receive Date: 20091207
  Receipt Date: 20091201
  Transmission Date: 20100525
  Serious: Yes (Other)
  Sender: FDA-Public Use
  Company Number: B0609171A

PATIENT
  Sex: Male

DRUGS (2)
  1. RELENZA [Suspect]
     Indication: INFLUENZA
     Dosage: 10MG TWICE PER DAY
     Route: 055
     Dates: start: 20091124, end: 20091124
  2. MEDICON [Suspect]
     Indication: COUGH
     Dosage: 15MG THREE TIMES PER DAY
     Route: 048
     Dates: start: 20091124, end: 20091124

REACTIONS (1)
  - ERYTHEMA MULTIFORME [None]
